FAERS Safety Report 23563552 (Version 2)
Quarter: 2024Q1

REPORT INFORMATION
  Report Type: Spontaneous
  Country: US (occurrence: US)
  Receive Date: 20240226
  Receipt Date: 20240227
  Transmission Date: 20240410
  Serious: Yes (Other)
  Sender: FDA-Public Use
  Company Number: US-ESPERIONTHERAPEUTICS-2024USA00262

PATIENT
  Age: 47 Year
  Sex: Male

DRUGS (2)
  1. NEXLIZET [Suspect]
     Active Substance: BEMPEDOIC ACID\EZETIMIBE
     Indication: Hypercholesterolaemia
     Dosage: 180 MG/10 MG, QD IN THE MORNING BEFORE EATING OR DRINKING
     Route: 048
     Dates: start: 2022
  2. NEXLIZET [Suspect]
     Active Substance: BEMPEDOIC ACID\EZETIMIBE
     Dosage: UNK
     Route: 065
     Dates: end: 20240205

REACTIONS (4)
  - Optic ischaemic neuropathy [Unknown]
  - Blindness [Recovering/Resolving]
  - Blood triglycerides increased [Unknown]
  - Product dose omission issue [Recovered/Resolved]
